FAERS Safety Report 10337888 (Version 2)
Quarter: 2014Q3

REPORT INFORMATION
  Report Type: Spontaneous
  Country: US (occurrence: US)
  Receive Date: 20140724
  Receipt Date: 20140724
  Transmission Date: 20150326
  Serious: No
  Sender: FDA-Public Use
  Company Number: US-UNITED THERAPEUTICS-UTC-047472

PATIENT
  Age: 64 Year
  Sex: Female

DRUGS (4)
  1. COUMADIN [Concomitant]
     Active Substance: WARFARIN SODIUM
  2. LETAIRIS [Concomitant]
     Active Substance: AMBRISENTAN
  3. REMODULIN [Suspect]
     Active Substance: TREPROSTINIL
     Dosage: 0.03 UG/KG/MIN
     Route: 058
     Dates: start: 20131220
  4. ADCIRCA [Concomitant]
     Active Substance: TADALAFIL

REACTIONS (6)
  - Infusion site vesicles [Unknown]
  - Injection site discharge [Unknown]
  - Skin exfoliation [Unknown]
  - Sinusitis [Unknown]
  - Infusion site pain [Unknown]
  - Pyrexia [Unknown]

NARRATIVE: CASE EVENT DATE: 20140416
